FAERS Safety Report 7426462-3 (Version None)
Quarter: 2011Q2

REPORT INFORMATION
  Report Type: 
  Country: None (occurrence: None)
  Receive Date: 20110420
  Receipt Date: 20100401
  Transmission Date: 20111010
  Serious: Yes (Other)
  Sender: FDA-Public Use
  Company Number: PHHY2010DE15205

PATIENT
  Sex: Female

DRUGS (3)
  1. EXTAVIA [Suspect]
     Dosage: 1 ML, QOD
     Route: 058
     Dates: start: 20090309
  2. AKTREN [Concomitant]
  3. EXTAVIA [Suspect]
     Dosage: UNK
     Dates: start: 20100313

REACTIONS (7)
  - ASTHENIA [None]
  - INJECTION SITE ERYTHEMA [None]
  - INFLUENZA LIKE ILLNESS [None]
  - INJECTION SITE PAIN [None]
  - HEPATIC ENZYME INCREASED [None]
  - TACHYCARDIA [None]
  - PANIC ATTACK [None]
